FAERS Safety Report 5617252-2 (Version None)
Quarter: 2008Q1

REPORT INFORMATION
  Report Type: 
  Country: None (occurrence: None)
  Receive Date: 20080207
  Receipt Date: 20080123
  Transmission Date: 20080703
  Serious: Yes (Death, Other)
  Sender: FDA-Public Use
  Company Number: TR-TEVA-166679ISR

PATIENT
  Age: 6 Year
  Sex: Male

DRUGS (9)
  1. METHOTREXATE [Suspect]
     Indication: NON-HODGKIN'S LYMPHOMA
  2. PREDNISONE TAB [Suspect]
     Indication: NON-HODGKIN'S LYMPHOMA
  3. CYTARABINE [Suspect]
     Indication: NON-HODGKIN'S LYMPHOMA
  4. CYCLOPHOSPHAMIDE [Concomitant]
     Indication: NON-HODGKIN'S LYMPHOMA
  5. IFOSFAMIDE [Concomitant]
     Indication: NON-HODGKIN'S LYMPHOMA
  6. ETOPOSIDE [Concomitant]
     Indication: NON-HODGKIN'S LYMPHOMA
  7. DOXORUBICIN [Concomitant]
     Indication: NON-HODGKIN'S LYMPHOMA
  8. VINCRISTINE SULFATE [Concomitant]
     Indication: NON-HODGKIN'S LYMPHOMA
  9. FOLINIC ACID [Concomitant]
     Indication: NON-HODGKIN'S LYMPHOMA

REACTIONS (5)
  - APHASIA [None]
  - CEREBRAL HAEMATOMA [None]
  - CONVULSION [None]
  - HEMIPARESIS [None]
  - LOSS OF CONSCIOUSNESS [None]
